FAERS Safety Report 16989274 (Version 1)
Quarter: 2019Q4

REPORT INFORMATION
  Report Type: Spontaneous
  Country: US (occurrence: US)
  Receive Date: 20191101
  Receipt Date: 20191101
  Transmission Date: 20200122
  Serious: Yes (Other)
  Sender: FDA-Public Use
  Company Number: None

PATIENT
  Age: 80 Year
  Sex: Female

DRUGS (1)
  1. XPOVIO [Suspect]
     Active Substance: SELINEXOR
     Indication: PLASMA CELL MYELOMA
     Dosage: ?          OTHER FREQUENCY:2 TIMES PER WEEK;?
     Route: 048
     Dates: start: 20190812, end: 20191101

REACTIONS (6)
  - Drug intolerance [None]
  - Nausea [None]
  - Vomiting [None]
  - Blood sodium decreased [None]
  - Malaise [None]
  - Fatigue [None]

NARRATIVE: CASE EVENT DATE: 20191101
